FAERS Safety Report 18555213 (Version 3)
Quarter: 2025Q2

REPORT INFORMATION
  Report Type: Spontaneous
  Country: US (occurrence: US)
  Receive Date: 20201127
  Receipt Date: 20250623
  Transmission Date: 20250717
  Serious: Yes (Death, Other)
  Sender: PURDUE
  Company Number: US-PURDUE-USA-2020-0179155

PATIENT
  Age: 51 Year
  Sex: Male

DRUGS (2)
  1. HYDROMORPHONE [Suspect]
     Active Substance: HYDROMORPHONE
     Indication: Pain
     Route: 048
  2. HEROIN [Suspect]
     Active Substance: DIAMORPHINE
     Indication: Product used for unknown indication
     Route: 065

REACTIONS (3)
  - Overdose [Fatal]
  - Drug abuse [Fatal]
  - Drug dependence [Unknown]
